FAERS Safety Report 9155291 (Version 3)
Quarter: 2013Q2

REPORT INFORMATION
  Report Type: Report from Study
  Country: US (occurrence: US)
  Receive Date: 20130311
  Receipt Date: 20130514
  Transmission Date: 20140414
  Serious: Yes (Hospitalization, Other)
  Sender: FDA-Public Use
  Company Number: PHEH2013US005641

PATIENT
  Age: 37 Year
  Sex: Female
  Weight: 78.91 kg

DRUGS (6)
  1. GILENYA [Suspect]
     Indication: MULTIPLE SCLEROSIS
     Dosage: 0.5 MG, QD
     Route: 048
     Dates: start: 20130206
  2. BACLOFEN [Concomitant]
  3. CITALOPRAM [Concomitant]
  4. CYCLOBENZAPRINE [Concomitant]
  5. ORTHO TRI-CYCLEN [Concomitant]
  6. ZANTAC [Concomitant]

REACTIONS (7)
  - Road traffic accident [Not Recovered/Not Resolved]
  - Post-traumatic neck syndrome [Not Recovered/Not Resolved]
  - Ligament sprain [Not Recovered/Not Resolved]
  - Limb discomfort [Not Recovered/Not Resolved]
  - Vomiting [Unknown]
  - Pain [Not Recovered/Not Resolved]
  - Multiple sclerosis relapse [Unknown]
